FAERS Safety Report 17571095 (Version 1)
Quarter: 2020Q1

REPORT INFORMATION
  Report Type: Spontaneous
  Country: US (occurrence: US)
  Receive Date: 20200317
  Receipt Date: 20200317
  Transmission Date: 20200409
  Serious: No
  Sender: FDA-Public Use
  Company Number: None

PATIENT
  Sex: Female

DRUGS (1)
  1. PROLIA [Suspect]
     Active Substance: DENOSUMAB
     Indication: OSTEOARTHRITIS
     Dosage: ?          OTHER FREQUENCY:EVERY6MONTHS ;?
     Route: 058
     Dates: start: 20191015

REACTIONS (4)
  - Confusional state [None]
  - Arthropod bite [None]
  - Pruritus [None]
  - Urticaria [None]
